FAERS Safety Report 5013828-4 (Version None)
Quarter: 2006Q2

REPORT INFORMATION
  Report Type: 
  Country: None (occurrence: None)
  Receive Date: 20060525
  Receipt Date: 20060510
  Transmission Date: 20061013
  Serious: Yes (Death, Hospitalization)
  Sender: FDA-Public Use
  Company Number: 2006063136

PATIENT
  Age: 40 Year
  Sex: Female

DRUGS (4)
  1. DEPO-MEDROL [Suspect]
     Indication: RHEUMATOID ARTHRITIS
     Dosage: UNK (80 MG, UNKNOWN), INTRAMUSCULAR
     Route: 030
     Dates: start: 20060318, end: 20060318
  2. ALL OTHER THERAPEUTIC PRODUCTS [Concomitant]
  3. VOVERAN (DICLOFENAC SODIUM) [Concomitant]
  4. LEFLUNOMIDE [Concomitant]

REACTIONS (6)
  - ANXIETY [None]
  - DERMATITIS ALLERGIC [None]
  - DIALYSIS [None]
  - RENAL FAILURE ACUTE [None]
  - SEPSIS [None]
  - STEVENS-JOHNSON SYNDROME [None]
